FAERS Safety Report 4686786-X (Version None)
Quarter: 2005Q2

REPORT INFORMATION
  Report Type: 
  Country: None (occurrence: None)
  Receive Date: 20050608
  Receipt Date: 20050525
  Transmission Date: 20051028
  Serious: Yes (Life-Threatening, Hospitalization, Other)
  Sender: FDA-Public Use
  Company Number: MEDI-0003085

PATIENT
  Age: 52 Year
  Sex: Male
  Weight: 90 kg

DRUGS (5)
  1. ETHYOL [Suspect]
     Indication: SQUAMOUS CELL CARCINOMA
     Dosage: 400 MG, 5 IN 1 WK, INTRAVENOUS
     Route: 042
     Dates: start: 20050214, end: 20050318
  2. RADIATION THERAPY [Concomitant]
  3. CISPLATIN [Concomitant]
  4. SOLU-MEDROL [Concomitant]
  5. ONDANSETRON HYDROCHLORIDE [Concomitant]

REACTIONS (17)
  - ATELECTASIS [None]
  - BLOOD CULTURE POSITIVE [None]
  - BLOOD GLUCOSE INCREASED [None]
  - CHEILITIS [None]
  - DYSPHAGIA [None]
  - ENDOCARDITIS BACTERIAL [None]
  - HAEMOGLOBIN DECREASED [None]
  - LEUKOPENIA [None]
  - LYMPHOPENIA [None]
  - RENAL FAILURE [None]
  - RESPIRATORY ALKALOSIS [None]
  - SKIN INFECTION [None]
  - STAPHYLOCOCCAL ABSCESS [None]
  - STAPHYLOCOCCAL INFECTION [None]
  - TACHYCARDIA [None]
  - THROMBOCYTOPENIA [None]
  - TOXIC EPIDERMAL NECROLYSIS [None]
